FAERS Safety Report 12709946 (Version 2)
Quarter: 2016Q3

REPORT INFORMATION
  Report Type: Spontaneous
  Country: BR (occurrence: BR)
  Receive Date: 20160902
  Receipt Date: 20160913
  Transmission Date: 20161109
  Serious: Yes (Other)
  Sender: FDA-Public Use
  Company Number: BR-VALIDUS PHARMACEUTICALS LLC-BR-2015VAL000601

PATIENT

DRUGS (6)
  1. PARLODEL [Suspect]
     Active Substance: BROMOCRIPTINE MESYLATE
     Dosage: LOWER DOSAGE
     Route: 048
  2. PARLODEL [Suspect]
     Active Substance: BROMOCRIPTINE MESYLATE
     Indication: PITUITARY TUMOUR BENIGN
     Dosage: 3 DF, QD
     Route: 048
     Dates: start: 20030508
  3. ENALAPRIL [Concomitant]
     Active Substance: ENALAPRIL
     Indication: PRODUCT USED FOR UNKNOWN INDICATION
     Dosage: 0.5 MG, UNK
  4. PARLODEL [Suspect]
     Active Substance: BROMOCRIPTINE MESYLATE
     Dosage: 3 DF, QD
     Route: 048
  5. PARLODEL [Suspect]
     Active Substance: BROMOCRIPTINE MESYLATE
     Dosage: 3 DF, QD
     Route: 048
  6. QUETIAPINE (NGX) [Suspect]
     Active Substance: QUETIAPINE
     Indication: PITUITARY TUMOUR BENIGN
     Dosage: UNK

REACTIONS (10)
  - Drug ineffective [Unknown]
  - Tooth loss [Recovering/Resolving]
  - Tooth disorder [Recovering/Resolving]
  - Pituitary tumour [Unknown]
  - Seizure [Recovering/Resolving]
  - Product use issue [Unknown]
  - Blood testosterone decreased [Recovered/Resolved]
  - Blindness [Not Recovered/Not Resolved]
  - Drug intolerance [Unknown]
  - Weight increased [Recovered/Resolved]

NARRATIVE: CASE EVENT DATE: 2015
